FAERS Safety Report 11778621 (Version 2)
Quarter: 2015Q4

REPORT INFORMATION
  Report Type: Spontaneous
  Country: CN (occurrence: CN)
  Receive Date: 20151125
  Receipt Date: 20151210
  Transmission Date: 20160304
  Serious: Yes (Hospitalization, Other)
  Sender: FDA-Public Use
  Company Number: CN-GILEAD-2015-0181145

PATIENT
  Age: 65 Year
  Sex: Female

DRUGS (3)
  1. HEPSERA [Suspect]
     Active Substance: ADEFOVIR DIPIVOXIL
     Indication: HEPATITIS B
     Dosage: 1 MG, QD (10 MG TABLET)
     Route: 048
     Dates: start: 2005, end: 201510
  2. HEPSERA [Suspect]
     Active Substance: ADEFOVIR DIPIVOXIL
     Indication: HEPATIC CIRRHOSIS
     Dosage: 15 MG, QD
     Route: 048
  3. HEPSERA [Suspect]
     Active Substance: ADEFOVIR DIPIVOXIL
     Dosage: 1 MG, QD (10 MG TABLET)
     Route: 048
     Dates: end: 201510

REACTIONS (10)
  - Muscular weakness [Recovered/Resolved]
  - Viral load increased [Recovered/Resolved]
  - Blood calcium decreased [Recovering/Resolving]
  - Wrist fracture [Unknown]
  - Drug ineffective [Recovered/Resolved]
  - Fall [Unknown]
  - Blood phosphorus decreased [Not Recovered/Not Resolved]
  - Prescribed overdose [Unknown]
  - Hip fracture [Unknown]
  - Blood potassium decreased [Recovering/Resolving]

NARRATIVE: CASE EVENT DATE: 201508
